FAERS Safety Report 15360428 (Version 2)
Quarter: 2018Q3

REPORT INFORMATION
  Report Type: Spontaneous
  Country: US (occurrence: US)
  Receive Date: 20180907
  Receipt Date: 20180911
  Transmission Date: 20181010
  Serious: No
  Sender: FDA-Public Use
  Company Number: US-PFIZER INC-2018358101

PATIENT
  Age: 6 Year
  Sex: Male
  Weight: 21.77 kg

DRUGS (3)
  1. SYNTHROID [Concomitant]
     Active Substance: LEVOTHYROXINE SODIUM
     Indication: HYPERTHYROIDISM
     Dosage: 0.75 UG, 1X/DAY
  2. XELJANZ [Suspect]
     Active Substance: TOFACITINIB CITRATE
     Dosage: 5 MG, 1X/DAY
     Dates: start: 201807
  3. XELJANZ [Suspect]
     Active Substance: TOFACITINIB CITRATE
     Indication: SKIN DISORDER
     Dosage: 5 MG, DAILY

REACTIONS (3)
  - Product use in unapproved indication [Unknown]
  - Wrong technique in product usage process [Unknown]
  - Skin infection [Unknown]
